FAERS Safety Report 12888636 (Version 11)
Quarter: 2021Q2

REPORT INFORMATION
  Report Type: Report from Study
  Country: JP (occurrence: JP)
  Receive Date: 20161027
  Receipt Date: 20210527
  Transmission Date: 20210716
  Serious: Yes (Death, Hospitalization)
  Sender: FDA-Public Use
  Company Number: PHJP2016JP008670

PATIENT
  Age: 67 Year
  Sex: Male
  Weight: 76.2 kg

DRUGS (49)
  1. AMIODARONE [Concomitant]
     Active Substance: AMIODARONE
     Indication: VENTRICULAR TACHYCARDIA
     Dosage: 100 MG, QD
     Route: 048
  2. HALFDIGOXIN [Concomitant]
     Active Substance: DIGOXIN
     Dosage: 0.125 MG, QD
     Route: 048
     Dates: start: 20170513
  3. FEBURIC [Concomitant]
     Active Substance: FEBUXOSTAT
     Indication: HYPERURICAEMIA
     Dosage: 20 MG, QD
     Route: 048
     Dates: start: 20110416
  4. ARTIST [Concomitant]
     Active Substance: CARVEDILOL
     Dosage: 10 MG, BID
     Route: 048
     Dates: start: 20170615
  5. WARFARIN [Concomitant]
     Active Substance: WARFARIN
     Dosage: 2 MG, QOD
     Route: 048
     Dates: start: 20160903
  6. RAVONAL [Concomitant]
     Active Substance: THIOPENTAL
     Indication: PRODUCT USED FOR UNKNOWN INDICATION
     Dosage: UNK
     Route: 065
     Dates: start: 20160706
  7. AMIODARONE [Concomitant]
     Active Substance: AMIODARONE
     Dosage: 400 MG, QD
     Route: 048
     Dates: start: 20160523
  8. AMIODARONE [Concomitant]
     Active Substance: AMIODARONE
     Dosage: 200 MG, QD
     Route: 048
     Dates: start: 20160616
  9. WARFARIN [Concomitant]
     Active Substance: WARFARIN
     Dosage: 3 MG, QOD
     Route: 048
     Dates: start: 20161207
  10. ENTRESTO [Suspect]
     Active Substance: SACUBITRIL\VALSARTAN
     Dosage: UNK
     Route: 048
     Dates: start: 20160219
  11. TRAMCET [Concomitant]
     Active Substance: ACETAMINOPHEN\TRAMADOL
     Indication: LUMBAR SPINAL STENOSIS
     Dosage: 1 DF, QID
     Route: 048
     Dates: start: 20171204
  12. ENTRESTO [Suspect]
     Active Substance: SACUBITRIL\VALSARTAN
     Indication: CARDIAC FAILURE
     Dosage: UNK
     Route: 048
     Dates: start: 20160122
  13. AMIODARONE [Concomitant]
     Active Substance: AMIODARONE
     Dosage: 150 MG, QD
     Route: 048
     Dates: start: 20170211
  14. HALFDIGOXIN [Concomitant]
     Active Substance: DIGOXIN
     Indication: CARDIAC FAILURE
     Dosage: 0.125 MG, QD
     Route: 048
     Dates: start: 20111025, end: 20170420
  15. WARFARIN [Concomitant]
     Active Substance: WARFARIN
     Dosage: 2.5 MG, QD
     Route: 048
     Dates: start: 20180320
  16. EFFORTIL [Concomitant]
     Active Substance: ETILEFRINE HYDROCHLORIDE
     Indication: PRODUCT USED FOR UNKNOWN INDICATION
     Dosage: UNK
     Route: 065
     Dates: start: 20160706
  17. FEXOFENADINE [Concomitant]
     Active Substance: FEXOFENADINE HYDROCHLORIDE
     Indication: PRURITUS
     Dosage: 60 MG, BID
     Route: 048
     Dates: start: 20160812
  18. BROTIZOLAM [Concomitant]
     Active Substance: BROTIZOLAM
     Indication: INSOMNIA
     Dosage: 0.25 MG, QD
     Route: 048
     Dates: start: 20160813
  19. FERROUS SODIUM CITRATE [Concomitant]
     Active Substance: SODIUM FERROUS CITRATE
     Indication: IRON DEFICIENCY ANAEMIA
     Dosage: 50 MG, BID
     Route: 048
     Dates: start: 20170419
  20. SAMSCA [Concomitant]
     Active Substance: TOLVAPTAN
     Indication: CARDIAC FAILURE
     Dosage: 3.75 MG, UNK
     Route: 048
     Dates: start: 20170831
  21. BAYASPIRIN [Concomitant]
     Active Substance: ASPIRIN
     Indication: PROPHYLAXIS
     Dosage: 100 MG, QD
     Route: 048
     Dates: start: 20110415
  22. BAYASPIRIN [Concomitant]
     Active Substance: ASPIRIN
     Dosage: 100 MG, QD
     Route: 048
     Dates: start: 20161103
  23. ARTIST [Concomitant]
     Active Substance: CARVEDILOL
     Indication: CARDIAC FAILURE
     Dosage: 10 MG, BID
     Route: 048
  24. TERNELIN [Concomitant]
     Active Substance: TIZANIDINE
     Indication: LUMBAR SPINAL STENOSIS
     Dosage: 1 MG, TID
     Route: 048
     Dates: start: 20110511
  25. PRECEDEX [Concomitant]
     Active Substance: DEXMEDETOMIDINE HYDROCHLORIDE
     Indication: PRODUCT USED FOR UNKNOWN INDICATION
     Dosage: UNK
     Route: 065
     Dates: start: 20160706
  26. ETHYL ICOSAPENTATE [Concomitant]
     Active Substance: ICOSAPENT ETHYL
     Indication: DYSLIPIDAEMIA
     Dosage: 900 MG, BID
     Route: 048
     Dates: start: 20160812
  27. TIZANIDINE. [Concomitant]
     Active Substance: TIZANIDINE
     Indication: LUMBAR SPINAL STENOSIS
     Dosage: 1 MG, TID
     Route: 048
     Dates: start: 20160810
  28. BIOFERMIN R [Concomitant]
     Active Substance: DIETARY SUPPLEMENT\PROBIOTICS
     Indication: PROPHYLAXIS
     Dosage: 1 DF, TID
     Route: 048
     Dates: start: 20160819
  29. WARFARIN [Concomitant]
     Active Substance: WARFARIN
     Dosage: 2.5 MG, QD
     Route: 048
     Dates: start: 20160730
  30. WARFARIN [Concomitant]
     Active Substance: WARFARIN
     Dosage: 2.5 MG, QOD
     Route: 048
     Dates: start: 20160904
  31. WARFARIN [Concomitant]
     Active Substance: WARFARIN
     Dosage: 2.5 G, QOD
     Route: 048
     Dates: start: 20161206
  32. WARFARIN [Concomitant]
     Active Substance: WARFARIN
     Dosage: 2 MG, QD
     Route: 048
     Dates: start: 20170809
  33. MAGNESIUM SULPHATE [Concomitant]
     Active Substance: MAGNESIUM SULFATE
     Dosage: UNK
     Route: 041
     Dates: start: 20160811
  34. UNASYN [Concomitant]
     Active Substance: AMPICILLIN SODIUM\SULBACTAM SODIUM
     Indication: PNEUMONIA ASPIRATION
     Dosage: UNK
     Route: 065
  35. POTASSIUM CHLORIDE. [Concomitant]
     Active Substance: POTASSIUM CHLORIDE
     Indication: PRODUCT USED FOR UNKNOWN INDICATION
     Dosage: UNK
     Route: 041
     Dates: end: 20161109
  36. SAMSCA [Concomitant]
     Active Substance: TOLVAPTAN
     Dosage: 7.5 MG, QD
     Route: 048
     Dates: start: 20171226
  37. LASIX [Concomitant]
     Active Substance: FUROSEMIDE
     Indication: CARDIAC FAILURE
     Dosage: 1 DF, QD
     Route: 048
     Dates: start: 20110513
  38. THYRADIN [Concomitant]
     Active Substance: LEVOTHYROXINE
     Indication: HYPOTHYROIDISM
     Dosage: 50 UG, QD
     Route: 048
     Dates: start: 20110416
  39. FEBURIC [Concomitant]
     Active Substance: FEBUXOSTAT
     Dosage: 20 MG, QD
     Route: 048
     Dates: start: 20121029
  40. WARFARIN [Concomitant]
     Active Substance: WARFARIN
     Dosage: 2 MG, QOD
     Route: 048
     Dates: start: 20160605, end: 20160729
  41. LIMAPROST ALFADEX [Concomitant]
     Active Substance: LIMAPROST
     Indication: LUMBAR SPINAL STENOSIS
     Dosage: 5 UG, TID
     Route: 048
     Dates: start: 20130522
  42. MAGNESIUM OXIDE. [Concomitant]
     Active Substance: MAGNESIUM OXIDE
     Indication: CONSTIPATION
     Dosage: 330 MG, TID
     Route: 048
     Dates: start: 20161114
  43. WARFARIN [Concomitant]
     Active Substance: WARFARIN
     Indication: PROPHYLAXIS
     Dosage: 2.5 MG, QOD
     Route: 048
     Dates: start: 20160604, end: 20160604
  44. EPADEL [Concomitant]
     Active Substance: ICOSAPENT
     Indication: DYSLIPIDAEMIA
     Dosage: 900 MG, TID
     Route: 048
     Dates: start: 20120618
  45. LORCAM [Concomitant]
     Indication: LUMBAR SPINAL STENOSIS
     Dosage: 4 MG, TID
     Route: 048
     Dates: start: 20110511
  46. METHYCOBAL [Concomitant]
     Active Substance: METHYLCOBALAMIN
     Indication: LUMBAR SPINAL STENOSIS
     Dosage: 500 UG, TID
     Route: 048
     Dates: start: 20110511
  47. LOXONIN [Concomitant]
     Active Substance: LOXOPROFEN SODIUM
     Indication: LUMBAR SPINAL STENOSIS
     Dosage: 100 MG, QD
     Route: 062
     Dates: start: 20110525
  48. REBAMIPIDE [Concomitant]
     Active Substance: REBAMIPIDE
     Indication: GASTRITIS PROPHYLAXIS
     Dosage: 100 MG, TID
     Route: 048
     Dates: start: 20110311
  49. MAGNESIUM SULPHATE [Concomitant]
     Active Substance: MAGNESIUM SULFATE
     Indication: PRODUCT USED FOR UNKNOWN INDICATION
     Dosage: 20 ML, UNK
     Route: 042
     Dates: start: 20160707

REACTIONS (3)
  - Ventricular tachycardia [Recovered/Resolved]
  - Arrhythmia [Fatal]
  - Cardiac failure [Recovering/Resolving]

NARRATIVE: CASE EVENT DATE: 20160404
